FAERS Safety Report 5109251-4 (Version None)
Quarter: 2006Q3

REPORT INFORMATION
  Report Type: 
  Country: None (occurrence: None)
  Receive Date: 20060918
  Receipt Date: 20060907
  Transmission Date: 20061208
  Serious: Yes (Other)
  Sender: FDA-Public Use
  Company Number: 2006107856

PATIENT
  Age: 7 Year
  Sex: Female
  Weight: 19.0511 kg

DRUGS (1)
  1. BENADRYL [Suspect]
     Indication: RHINORRHOEA
     Dosage: 1 STRIP ONCE, ORAL
     Route: 048
     Dates: start: 20060901, end: 20060901

REACTIONS (9)
  - AGEUSIA [None]
  - GLOSSODYNIA [None]
  - ORAL DISCOMFORT [None]
  - ORAL MUCOSAL BLISTERING [None]
  - PAPILLOMA [None]
  - SKIN PAPILLOMA [None]
  - SWOLLEN TONGUE [None]
  - THERMAL BURN [None]
  - TONGUE BLISTERING [None]
